FAERS Safety Report 5277067-4 (Version None)
Quarter: 2007Q1

REPORT INFORMATION
  Report Type: 
  Country: None (occurrence: None)
  Receive Date: 20061213
  Receipt Date: 20050104
  Transmission Date: 20070707
  Serious: No
  Sender: FDA-Public Use
  Company Number: 2005UW00133

PATIENT
  Age: 59 Year
  Sex: Female
  Weight: 96.161 kg

DRUGS (14)
  1. SEROQUEL [Suspect]
     Indication: ANXIETY
     Dosage: 325 MG DAILY; PO
     Route: 048
     Dates: start: 20040701
  2. SEROQUEL [Suspect]
     Indication: BIPOLAR DISORDER
     Dosage: 325 MG DAILY; PO
     Route: 048
     Dates: start: 20040701
  3. SEROQUEL [Suspect]
     Indication: MOOD SWINGS
     Dosage: 325 MG DAILY; PO
     Route: 048
     Dates: start: 20040701
  4. DIOVAN [Concomitant]
  5. FUROSEMIDE [Concomitant]
  6. NO MATCH [Concomitant]
  7. BELLADONNA AND PHENOBARBITONE [Concomitant]
  8. TOPROL-XL [Concomitant]
  9. ACIPHEX [Concomitant]
  10. FEMHRT [Concomitant]
  11. DETROL [Concomitant]
  12. IRON SUPPLEMENT [Concomitant]
  13. MOBIC [Concomitant]
  14. CELEBREX [Concomitant]

REACTIONS (15)
  - ABDOMINAL DISCOMFORT [None]
  - BLOOD GLUCOSE INCREASED [None]
  - CONSTIPATION [None]
  - DIABETES MELLITUS [None]
  - DIZZINESS [None]
  - HYPERTENSION [None]
  - HYPOAESTHESIA [None]
  - MUSCLE RIGIDITY [None]
  - NEUROLEPTIC MALIGNANT SYNDROME [None]
  - NIGHTMARE [None]
  - PHARYNGOLARYNGEAL PAIN [None]
  - PYREXIA [None]
  - TARDIVE DYSKINESIA [None]
  - VISUAL DISTURBANCE [None]
  - WEIGHT INCREASED [None]
